FAERS Safety Report 21094867 (Version 1)
Quarter: 2022Q3

REPORT INFORMATION
  Report Type: Spontaneous
  Country: US (occurrence: None)
  Receive Date: 20220715
  Receipt Date: 20220715
  Transmission Date: 20221027
  Serious: Yes (Other)
  Sender: FDA-Public Use
  Company Number: None

PATIENT
  Age: 54 Year
  Sex: Female
  Weight: 73.8 kg

DRUGS (5)
  1. PREDNISOLONE [Suspect]
     Active Substance: PREDNISOLONE
     Indication: C-reactive protein increased
     Dosage: FREQUENCY : DAILY;?
     Route: 048
     Dates: start: 20220615, end: 20220715
  2. MICROGESTIN [Concomitant]
     Active Substance: ETHINYL ESTRADIOL\NORETHINDRONE ACETATE
  3. Centrum MVI [Concomitant]
  4. Nordic Naturals Omega 3 [Concomitant]
  5. VITAMIN B12 [Concomitant]
     Active Substance: CYANOCOBALAMIN

REACTIONS (21)
  - Headache [None]
  - Irritability [None]
  - Hyperhidrosis [None]
  - Flushing [None]
  - Dry mouth [None]
  - Blood pressure increased [None]
  - Dyspepsia [None]
  - Abdominal discomfort [None]
  - Disturbance in attention [None]
  - Psychomotor hyperactivity [None]
  - Palpitations [None]
  - Hyperventilation [None]
  - Muscle spasms [None]
  - Dry skin [None]
  - Weight increased [None]
  - Insomnia [None]
  - Asthenia [None]
  - Blood potassium decreased [None]
  - Blood electrolytes decreased [None]
  - Pain [None]
  - Malaise [None]

NARRATIVE: CASE EVENT DATE: 20220701
